FAERS Safety Report 20018916 (Version 2)
Quarter: 2021Q4

REPORT INFORMATION
  Report Type: Spontaneous
  Country: PT (occurrence: PT)
  Receive Date: 20211101
  Receipt Date: 20211206
  Transmission Date: 20220303
  Serious: Yes (Hospitalization, Other)
  Sender: FDA-Public Use
  Company Number: PT-Accord-243970

PATIENT
  Age: 73 Year
  Sex: Female

DRUGS (5)
  1. CLOZAPINE [Suspect]
     Active Substance: CLOZAPINE
     Indication: Mania
  2. LITHIUM [Suspect]
     Active Substance: LITHIUM
     Indication: Mania
  3. OLANZAPINE [Suspect]
     Active Substance: OLANZAPINE
     Indication: Mania
     Dosage: 7.5 MG/D?INCREASED TO 15 MG/D
  4. DIAZEPAM [Suspect]
     Active Substance: DIAZEPAM
     Indication: Mania
  5. LAMOTRIGINE [Suspect]
     Active Substance: LAMOTRIGINE
     Indication: Mania
     Dosage: CONTINUED AT 100 MG/D.

REACTIONS (1)
  - Pleurothotonus [Recovered/Resolved]
